FAERS Safety Report 17952004 (Version 1)
Quarter: 2020Q2

REPORT INFORMATION
  Report Type: Spontaneous
  Country: NL (occurrence: NL)
  Receive Date: 20200626
  Receipt Date: 20200626
  Transmission Date: 20200714
  Serious: Yes (Disabling)
  Sender: FDA-Public Use
  Company Number: NL-BAYER-2020-124295

PATIENT
  Age: 23 Year
  Sex: Female
  Weight: 63 kg

DRUGS (2)
  1. BILTRICIDE [Suspect]
     Active Substance: PRAZIQUANTEL
     Indication: HELMINTHIC INFECTION
     Dosage: 12 STUKS. 4 X 3 TABLETTEN BINNEN 12 UUR TIJD
     Dates: start: 201607, end: 20160724
  2. MEBENDAZOL [Concomitant]
     Active Substance: MEBENDAZOLE
     Dosage: TABLET, 100 MG (MILLIGRAM)

REACTIONS (3)
  - Skin disorder [Not Recovered/Not Resolved]
  - Arrhythmia [Not Recovered/Not Resolved]
  - Chest pain [Not Recovered/Not Resolved]

NARRATIVE: CASE EVENT DATE: 20160729
